FAERS Safety Report 17829473 (Version 1)
Quarter: 2020Q2

REPORT INFORMATION
  Report Type: Spontaneous
  Country: US (occurrence: US)
  Receive Date: 20200527
  Receipt Date: 20200527
  Transmission Date: 20200714
  Serious: No
  Sender: FDA-Public Use
  Company Number: None

PATIENT
  Age: 86 Year
  Sex: Male
  Weight: 101.7 kg

DRUGS (14)
  1. LEVOTHYROXINE 112MCG [Concomitant]
     Active Substance: LEVOTHYROXINE
  2. SIMVASTATIN 40MG [Concomitant]
     Active Substance: SIMVASTATIN
  3. DUTASTERIDE 0.5MG [Concomitant]
     Active Substance: DUTASTERIDE
  4. FISHOIL [Concomitant]
  5. LOSARTAN-HCTZ 50-12.5MG [Concomitant]
     Active Substance: HYDROCHLOROTHIAZIDE\LOSARTAN POTASSIUM
  6. MVI [Concomitant]
     Active Substance: VITAMINS
  7. WARFARIN 5MG [Concomitant]
     Active Substance: WARFARIN
  8. ABIRATERONE. [Suspect]
     Active Substance: ABIRATERONE ACETATE
     Indication: PROSTATE CANCER
     Route: 048
     Dates: start: 20191017, end: 20200527
  9. TAMSULOSIN 0.4MG [Concomitant]
     Active Substance: TAMSULOSIN
  10. FIBERCON 625MG [Concomitant]
  11. FENOFIBRATE 145MG [Concomitant]
     Active Substance: FENOFIBRATE
  12. LEUPROLIDE ACETATE- BUPIVACAINE [Concomitant]
  13. LOTRISONE 1-0.05% [Concomitant]
  14. PREDNISONE 5MG [Concomitant]
     Active Substance: PREDNISONE

REACTIONS (3)
  - Balance disorder [None]
  - Hot flush [None]
  - Dizziness [None]

NARRATIVE: CASE EVENT DATE: 20200527
